FAERS Safety Report 16906901 (Version 1)
Quarter: 2019Q4

REPORT INFORMATION
  Report Type: Spontaneous
  Country: US (occurrence: US)
  Receive Date: 20191011
  Receipt Date: 20191011
  Transmission Date: 20200122
  Serious: Yes (Hospitalization)
  Sender: FDA-Public Use
  Company Number: US-INSMED, INC.-US-INS-19-03278

PATIENT
  Age: 23 Year
  Sex: Female
  Weight: 53.98 kg

DRUGS (2)
  1. LAMIRA NEBULIZER SYSTEM [Suspect]
     Active Substance: DEVICE
  2. ARIKAYCE [Suspect]
     Active Substance: AMIKACIN
     Indication: CYSTIC FIBROSIS
     Route: 055
     Dates: start: 20190131, end: 20190830

REACTIONS (3)
  - Sinus operation [Unknown]
  - Infective pulmonary exacerbation of cystic fibrosis [Unknown]
  - Off label use [Unknown]

NARRATIVE: CASE EVENT DATE: 20190926
